FAERS Safety Report 8248227-5 (Version None)
Quarter: 2012Q1

REPORT INFORMATION
  Report Type: 
  Country: None (occurrence: None)
  Receive Date: 20120330
  Receipt Date: 20120326
  Transmission Date: 20120608
  Serious: Yes (Hospitalization, Other)
  Sender: FDA-Public Use
  Company Number: FR-PFIZER INC-A02200300653

PATIENT
  Age: 62 Year
  Sex: Male

DRUGS (3)
  1. DOXORUBICIN HCL [Suspect]
     Indication: HEPATIC NEOPLASM MALIGNANT
     Dosage: UNK, CYCLIC
     Route: 042
     Dates: start: 20021209, end: 20021213
  2. FLUOROURACIL [Suspect]
     Indication: HEPATIC NEOPLASM MALIGNANT
     Dosage: UNK, CYCLIC
     Route: 042
     Dates: start: 20021209, end: 20021213
  3. ALDALIX [Concomitant]
     Indication: ESSENTIAL HYPERTENSION
     Dosage: UNK
     Route: 058

REACTIONS (6)
  - ANAEMIA [None]
  - FALL [None]
  - MALAISE [None]
  - PANCYTOPENIA [None]
  - NEUTROPENIA [None]
  - THROMBOCYTOPENIA [None]
